FAERS Safety Report 11575334 (Version 2)
Quarter: 2015Q4

REPORT INFORMATION
  Report Type: Spontaneous
  Country: CH (occurrence: CH)
  Receive Date: 20150930
  Receipt Date: 20151116
  Transmission Date: 20160304
  Serious: Yes (Other)
  Sender: FDA-Public Use
  Company Number: CH-TEVA-595172ISR

PATIENT
  Age: 71 Year
  Sex: Male

DRUGS (1)
  1. TAMSULOSIN [Suspect]
     Active Substance: TAMSULOSIN
     Indication: BENIGN PROSTATIC HYPERPLASIA
     Dosage: STARTED 1 YEAR AGO
     Route: 065

REACTIONS (7)
  - Paraneoplastic pemphigus [Unknown]
  - Weight decreased [Unknown]
  - Blepharitis [Unknown]
  - Dermatitis bullous [Unknown]
  - General physical health deterioration [Unknown]
  - B-cell lymphoma [Unknown]
  - Lichenification [Unknown]
